FAERS Safety Report 8159711-7 (Version None)
Quarter: 2012Q1

REPORT INFORMATION
  Report Type: 
  Country: None (occurrence: None)
  Receive Date: 20120223
  Receipt Date: 20120217
  Transmission Date: 20120608
  Serious: Yes (Other)
  Sender: FDA-Public Use
  Company Number: GB-JNJFOC-20120210976

PATIENT

DRUGS (1)
  1. NICORETTE [Suspect]
     Indication: PRODUCT USED FOR UNKNOWN INDICATION
     Dosage: TWO SPRAYS PER WEEK
     Route: 048
     Dates: start: 20110101

REACTIONS (2)
  - NICOTINE DEPENDENCE [None]
  - INCORRECT DRUG ADMINISTRATION DURATION [None]
